FAERS Safety Report 12406698 (Version 1)
Quarter: 2016Q2

REPORT INFORMATION
  Report Type: Spontaneous
  Country: BR (occurrence: BR)
  Receive Date: 20160526
  Receipt Date: 20160526
  Transmission Date: 20160815
  Serious: Yes (Other)
  Sender: FDA-Public Use
  Company Number: BR-PFIZER INC-2016264132

PATIENT
  Age: 72 Year
  Sex: Female
  Weight: 51 kg

DRUGS (3)
  1. XALATAN [Suspect]
     Active Substance: LATANOPROST
     Indication: GLAUCOMA
     Dosage: 1 DROP IN EACH EYE, EVERY NIGHT
     Route: 047
     Dates: start: 2014, end: 201601
  2. GALVUS MET [Concomitant]
     Active Substance: METFORMIN HYDROCHLORIDE\VILDAGLIPTIN
     Indication: DIABETES MELLITUS
     Dosage: UNK
  3. MONALESS [Concomitant]
     Indication: BLOOD CHOLESTEROL
     Dosage: UNK

REACTIONS (2)
  - Cataract [Unknown]
  - Cataract [Unknown]

NARRATIVE: CASE EVENT DATE: 201601
